FAERS Safety Report 4550115-2 (Version None)
Quarter: 2005Q1

REPORT INFORMATION
  Report Type: 
  Country: None (occurrence: None)
  Receive Date: 20050107
  Receipt Date: 20041222
  Transmission Date: 20050727
  Serious: Yes (Hospitalization)
  Sender: FDA-Public Use
  Company Number: US014485

PATIENT
  Age: 50 Year
  Sex: Male

DRUGS (1)
  1. ACTIQ [Suspect]

REACTIONS (1)
  - DRUG ABUSER [None]
